FAERS Safety Report 21764118 (Version 2)
Quarter: 2022Q4

REPORT INFORMATION
  Report Type: Spontaneous
  Country: CA (occurrence: CA)
  Receive Date: 20221222
  Receipt Date: 20221223
  Transmission Date: 20230113
  Serious: Yes (Death, Hospitalization, Other)
  Sender: FDA-Public Use
  Company Number: CA-002147023-NVSC2022CA295480

PATIENT

DRUGS (1)
  1. METHOTREXATE [Suspect]
     Active Substance: METHOTREXATE
     Indication: Inflammation
     Dosage: UNK
     Route: 065

REACTIONS (7)
  - Infection [Fatal]
  - Product dispensing error [Fatal]
  - Toxicity to various agents [Unknown]
  - Pancytopenia [Unknown]
  - Mucosal inflammation [Unknown]
  - Product prescribing error [Unknown]
  - Drug monitoring procedure not performed [Unknown]
